FAERS Safety Report 7280153-0 (Version None)
Quarter: 2011Q1

REPORT INFORMATION
  Report Type: 
  Country: None (occurrence: None)
  Receive Date: 20110208
  Receipt Date: 20110128
  Transmission Date: 20110831
  Serious: Yes (Other)
  Sender: FDA-Public Use
  Company Number: US-JNJFOC-20110200088

PATIENT
  Sex: Female
  Weight: 62.6 kg

DRUGS (4)
  1. OSCAL NOS [Concomitant]
     Route: 065
  2. FOLIC ACID [Concomitant]
     Route: 048
  3. REMICADE [Suspect]
     Indication: RHEUMATOID ARTHRITIS
     Route: 042
  4. PLAVIX [Concomitant]
     Route: 048

REACTIONS (3)
  - CARDIAC DISORDER [None]
  - ALOPECIA [None]
  - SURGERY [None]
